FAERS Safety Report 23132421 (Version 4)
Quarter: 2023Q4

REPORT INFORMATION
  Report Type: Report from Study
  Country: GB (occurrence: None)
  Receive Date: 20231101
  Receipt Date: 20231113
  Transmission Date: 20240110
  Serious: Yes (Hospitalization)
  Sender: FDA-Public Use
  Company Number: GB-ROCHE-3444593

PATIENT
  Age: 63 Year
  Sex: Female

DRUGS (3)
  1. IPATASERTIB [Suspect]
     Active Substance: IPATASERTIB
     Indication: Malignant melanoma
     Dosage: DATE OF MOST RECENT DOSE PRIOR TO EVENT 18/OCT/2023?STOP DATE OF IMP: 19/OCT/2023
     Route: 048
     Dates: start: 20230915
  2. ATEZOLIZUMAB [Suspect]
     Active Substance: ATEZOLIZUMAB
     Indication: Malignant melanoma
     Dosage: DATE OF MOST RECENT DOSE PRIOR TO EVENT RECEIVED ON 06/OCT/2023?STOP DATE OF IMP: 06/OCT/2023
     Route: 041
     Dates: start: 20230915
  3. METRONIDAZOLE [Concomitant]
     Active Substance: METRONIDAZOLE
     Indication: Cellulitis

REACTIONS (1)
  - Skin infection [Recovering/Resolving]

NARRATIVE: CASE EVENT DATE: 20231018
